FAERS Safety Report 7015297-1 (Version None)
Quarter: 2010Q3

REPORT INFORMATION
  Report Type: 
  Country: None (occurrence: None)
  Receive Date: 20100927
  Receipt Date: 20100916
  Transmission Date: 20110219
  Serious: Yes (Hospitalization)
  Sender: FDA-Public Use
  Company Number: BR-US-EMD SERONO, INC.-7017914

PATIENT
  Sex: Male

DRUGS (6)
  1. REBIF [Suspect]
     Indication: RELAPSING-REMITTING MULTIPLE SCLEROSIS
     Route: 058
     Dates: start: 20090901
  2. TYLEX [Concomitant]
  3. TEGRETOL [Concomitant]
  4. VENLIFT [Concomitant]
  5. RIVOTRIL [Concomitant]
  6. CAPTOPRIL [Concomitant]

REACTIONS (2)
  - BACK PAIN [None]
  - GAIT DISTURBANCE [None]
